FAERS Safety Report 21205301 (Version 1)
Quarter: 2022Q3

REPORT INFORMATION
  Report Type: Spontaneous
  Country: None (occurrence: US)
  Receive Date: 20220812
  Receipt Date: 20220812
  Transmission Date: 20221026
  Serious: No
  Sender: FDA-Public Use
  Company Number: US-ITALFARMACO SPA-2131783

PATIENT
  Age: 65 Year
  Sex: Male

DRUGS (4)
  1. TIGLUTIK [Suspect]
     Active Substance: RILUZOLE
     Indication: Amyotrophic lateral sclerosis
     Route: 048
     Dates: start: 20220614, end: 20220629
  2. FAMOTIDINE [Concomitant]
     Active Substance: FAMOTIDINE
  3. PROTONIX [Concomitant]
     Active Substance: PANTOPRAZOLE SODIUM
  4. SUCRALFATE [Concomitant]
     Active Substance: SUCRALFATE

REACTIONS (1)
  - Taste disorder [Unknown]

NARRATIVE: CASE EVENT DATE: 20220614
